FAERS Safety Report 7467015-0 (Version None)
Quarter: 2011Q2

REPORT INFORMATION
  Report Type: 
  Country: None (occurrence: None)
  Receive Date: 20110509
  Receipt Date: 20101012
  Transmission Date: 20111010
  Serious: No
  Sender: FDA-Public Use
  Company Number: US-ALEXION-A201001287

PATIENT
  Sex: Male
  Weight: 72.109 kg

DRUGS (6)
  1. LUNESTA [Concomitant]
  2. NEXIUM [Concomitant]
  3. EXJADE [Concomitant]
  4. LASIX [Concomitant]
  5. SOLIRIS [Suspect]
     Indication: PAROXYSMAL NOCTURNAL HAEMOGLOBINURIA
     Dosage: UNK
     Route: 042
  6. AMBIEN [Concomitant]

REACTIONS (1)
  - HAEMOGLOBIN DECREASED [None]
